FAERS Safety Report 17149400 (Version 2)
Quarter: 2019Q4

REPORT INFORMATION
  Report Type: Spontaneous
  Country: CN (occurrence: CN)
  Receive Date: 20191213
  Receipt Date: 20191218
  Transmission Date: 20200122
  Serious: Yes (Other)
  Sender: FDA-Public Use
  Company Number: CN-ASTRAZENECA-2019SF79620

PATIENT
  Age: 57 Year
  Sex: Female
  Weight: 65 kg

DRUGS (1)
  1. IRESSA [Suspect]
     Active Substance: GEFITINIB
     Indication: NON-SMALL CELL LUNG CANCER
     Dosage: 1 TABLET A DAY ORALLY FOR 10 MONTHS.
     Route: 048

REACTIONS (3)
  - Malignant neoplasm progression [Unknown]
  - Neoplasm progression [Unknown]
  - Drug resistance [Unknown]

NARRATIVE: CASE EVENT DATE: 2019
